FAERS Safety Report 5478774-0 (Version None)
Quarter: 2007Q4

REPORT INFORMATION
  Report Type: 
  Country: None (occurrence: None)
  Receive Date: 20071002
  Receipt Date: 20070917
  Transmission Date: 20080405
  Serious: Yes (Other)
  Sender: FDA-Public Use
  Company Number: DSA_30637_2007

PATIENT
  Sex: Male

DRUGS (2)
  1. VASOTEC [Suspect]
     Indication: HYPERTENSION
     Dosage: 2.5 MG QD ORAL
     Route: 048
     Dates: start: 20070830
  2. VASOTEC [Suspect]
     Indication: HYPERTENSION
     Dosage: 2.5 MG QD ORAL
     Route: 048
     Dates: start: 20060703, end: 20070801

REACTIONS (2)
  - CIRCUMSTANCE OR INFORMATION CAPABLE OF LEADING TO MEDICATION ERROR [None]
  - VENTRICULAR EXTRASYSTOLES [None]
